FAERS Safety Report 15647785 (Version 2)
Quarter: 2019Q2

REPORT INFORMATION
  Report Type: Spontaneous
  Country: US (occurrence: US)
  Receive Date: 20181122
  Receipt Date: 20190510
  Transmission Date: 20190711
  Serious: Yes (Hospitalization)
  Sender: FDA-Public Use
  Company Number: US-SUN PHARMACEUTICAL INDUSTRIES LTD-2018R1-191789

PATIENT
  Age: 16 Year
  Sex: Female

DRUGS (1)
  1. LITHIUM. [Suspect]
     Active Substance: LITHIUM
     Indication: PRODUCT USED FOR UNKNOWN INDICATION
     Dosage: UNK
     Route: 065

REACTIONS (8)
  - Toxicity to various agents [Recovering/Resolving]
  - Mental disorder [Unknown]
  - Encephalopathy [Unknown]
  - Condition aggravated [Unknown]
  - Electrocardiogram PR prolongation [Unknown]
  - Drug level increased [Recovering/Resolving]
  - Diabetes insipidus [Unknown]
  - Ataxia [Unknown]
